FAERS Safety Report 9904400 (Version 1)
Quarter: 2014Q1

REPORT INFORMATION
  Report Type: Spontaneous
  Country: DE (occurrence: DE)
  Receive Date: 20140218
  Receipt Date: 20140218
  Transmission Date: 20141002
  Serious: Yes (Other)
  Sender: FDA-Public Use
  Company Number: DE-VERTEX PHARMACEUTICALS INC-2014-000795

PATIENT
  Age: 62 Year
  Sex: Female

DRUGS (3)
  1. INCIVO [Suspect]
     Indication: HEPATITIS C
     Route: 048
  2. RIBAVIRIN [Suspect]
     Indication: HEPATITIS C
     Dosage: UNK
  3. PEG INTERFERON [Suspect]
     Indication: HEPATITIS C

REACTIONS (5)
  - Gastroenteritis rotavirus [Unknown]
  - Escherichia urinary tract infection [Unknown]
  - Gastroenteritis clostridial [Unknown]
  - Candida infection [Unknown]
  - Off label use [Unknown]
